FAERS Safety Report 4396603-3 (Version None)
Quarter: 2004Q3

REPORT INFORMATION
  Report Type: 
  Country: None (occurrence: None)
  Receive Date: 20040713
  Receipt Date: 20040713
  Transmission Date: 20050211
  Serious: Yes (Hospitalization)
  Sender: FDA-Public Use
  Company Number: None

PATIENT
  Age: 68 Year
  Sex: Male

DRUGS (1)
  1. CILOSTAZOL [Suspect]
     Dosage: TAKE 2 TAB DAILY

REACTIONS (2)
  - PALPITATIONS [None]
  - TACHYCARDIA [None]
